FAERS Safety Report 8269403 (Version 5)
Quarter: 2014Q3

REPORT INFORMATION
  Report Type: Spontaneous
  Country: US (occurrence: US)
  Receive Date: 20111130
  Receipt Date: 20140915
  Transmission Date: 20150326
  Serious: Yes (Hospitalization)
  Sender: FDA-Public Use
  Company Number: US-BAYER-2011-111695

PATIENT
  Age: 36 Year
  Sex: Female
  Weight: 52.15 kg

DRUGS (2)
  1. NECON [Concomitant]
     Active Substance: ETHINYL ESTRADIOL\NORETHINDRONE
  2. MIRENA [Suspect]
     Active Substance: LEVONORGESTREL
     Indication: CONTRACEPTION
     Dosage: 20 MCG/24HR, CONT
     Route: 015
     Dates: start: 20110922, end: 20111122

REACTIONS (10)
  - Anxiety [None]
  - Device dislocation [None]
  - Procedural pain [Recovered/Resolved]
  - Uterine perforation [None]
  - Depression [None]
  - Abdominal distension [Recovered/Resolved]
  - Device issue [None]
  - Injury [None]
  - Pain [None]
  - Emotional distress [None]

NARRATIVE: CASE EVENT DATE: 201109
